FAERS Safety Report 11352237 (Version 1)
Quarter: 2015Q3

REPORT INFORMATION
  Report Type: Spontaneous
  Country: US (occurrence: US)
  Receive Date: 20150807
  Receipt Date: 20150807
  Transmission Date: 20151125
  Serious: No
  Sender: FDA-Public Use
  Company Number: US-JNJFOC-20150314453

PATIENT
  Sex: Female

DRUGS (3)
  1. ESTROGEN PATCH (NOS) [Concomitant]
     Indication: MENOPAUSE
     Route: 065
  2. WOMENS ROGAINE [Suspect]
     Active Substance: MINOXIDIL
     Indication: ALOPECIA
     Dosage: USED FOR SEVERAL YEARS
     Route: 065
  3. WOMENS ROGAINE [Suspect]
     Active Substance: MINOXIDIL
     Indication: ALOPECIA
     Dosage: USED FOR SEVERAL YEARS
     Route: 065

REACTIONS (6)
  - Product use issue [Unknown]
  - Skin irritation [Unknown]
  - Drug ineffective [Unknown]
  - Hair texture abnormal [Unknown]
  - Erythema [Unknown]
  - Pruritus [Unknown]
